FAERS Safety Report 8369735-2 (Version None)
Quarter: 2012Q2

REPORT INFORMATION
  Report Type: 
  Country: None (occurrence: None)
  Receive Date: 20120518
  Receipt Date: 20120515
  Transmission Date: 20120825
  Serious: Yes (Other)
  Sender: FDA-Public Use
  Company Number: PHHY2012JP041861

PATIENT

DRUGS (2)
  1. CHEMOTHERAPEUTICS [Concomitant]
  2. IMATINIB MESYLATE [Suspect]
     Indication: CHRONIC MYELOID LEUKAEMIA
     Dosage: 300 MG, DAILY

REACTIONS (2)
  - NEOPLASM MALIGNANT [None]
  - LUNG NEOPLASM MALIGNANT [None]
